FAERS Safety Report 25765448 (Version 4)
Quarter: 2025Q4

REPORT INFORMATION
  Report Type: Report from Study
  Country: JP (occurrence: JP)
  Receive Date: 20250905
  Receipt Date: 20251202
  Transmission Date: 20260118
  Serious: Yes (Other)
  Sender: ABBVIE
  Company Number: JP-TAKEDA-2025TJP009005

PATIENT
  Age: 58 Year
  Sex: Male

DRUGS (3)
  1. LEUPROLIDE ACETATE [Suspect]
     Active Substance: LEUPROLIDE ACETATE
     Indication: Bulbospinal muscular atrophy congenital
     Dosage: FORM STRENGTH: 11.25 MILLIGRAM, EVERY THREE MONTH
     Route: 058
     Dates: start: 20171006, end: 20241107
  2. CLOTIAZEPAM [Concomitant]
     Active Substance: CLOTIAZEPAM
     Indication: Bulbospinal muscular atrophy congenital
     Dosage: FORM STRENGTH: 0.5 MILLIGRAM
     Route: 065
     Dates: start: 20220302
  3. TAURINE [Concomitant]
     Active Substance: TAURINE
     Indication: Bulbospinal muscular atrophy congenital
     Dosage: 3 GRAM
     Route: 065
     Dates: start: 20201014

REACTIONS (3)
  - Diabetes mellitus [Not Recovered/Not Resolved]
  - Chronic gastritis [Not Recovered/Not Resolved]
  - Blood testosterone decreased [Unknown]

NARRATIVE: CASE EVENT DATE: 20180320
